FAERS Safety Report 13620187 (Version 3)
Quarter: 2017Q2

REPORT INFORMATION
  Report Type: Spontaneous
  Country: AT (occurrence: AT)
  Receive Date: 20170607
  Receipt Date: 20170614
  Transmission Date: 20170830
  Serious: Yes (Hospitalization)
  Sender: FDA-Public Use
  Company Number: AT-UCBSA-2017021493

PATIENT
  Sex: Male

DRUGS (4)
  1. THROMBO ASS [Concomitant]
     Active Substance: ASPIRIN
     Indication: EPILEPSY
     Dosage: 100 MG, ONCE DAILY (QD)
     Route: 048
  2. TOPAMAX [Concomitant]
     Active Substance: TOPIRAMATE
     Indication: EPILEPSY
     Dosage: 300 MG, 2X/DAY (BID)
     Route: 048
  3. NOMEXOR [Suspect]
     Active Substance: NEBIVOLOL HYDROCHLORIDE
     Indication: EPILEPSY
     Dosage: 2.5 MG, ONCE DAILY (QD)
     Route: 048
     Dates: end: 20160902
  4. VIMPAT [Suspect]
     Active Substance: LACOSAMIDE
     Indication: EPILEPSY
     Dosage: 100 MG, 2X/DAY (BID)
     Route: 048
     Dates: end: 2016

REACTIONS (4)
  - Aortic valve incompetence [Unknown]
  - Epilepsy [Unknown]
  - Aortic aneurysm [Unknown]
  - Atrioventricular block second degree [Recovered/Resolved]

NARRATIVE: CASE EVENT DATE: 20160826
